FAERS Safety Report 8973441 (Version 1)
Quarter: 2012Q4

REPORT INFORMATION
  Report Type: Report from Study
  Country: DE (occurrence: DE)
  Receive Date: 20121218
  Receipt Date: 20121218
  Transmission Date: 20130627
  Serious: Yes (Hospitalization)
  Sender: FDA-Public Use
  Company Number: DE-ELI_LILLY_AND_COMPANY-DE201212004854

PATIENT
  Age: 84 Year
  Sex: Female
  Weight: 64 kg

DRUGS (16)
  1. PEMETREXED [Suspect]
     Indication: NON-SMALL CELL LUNG CANCER
     Dosage: 500 mg/m2, day one every three weeks
     Route: 042
     Dates: start: 20100514, end: 20100514
  2. PEMETREXED [Suspect]
     Dosage: 375 mg/m2, UNK
     Dates: start: 20100611
  3. BEVACIZUMAB [Suspect]
     Indication: NON-SMALL CELL LUNG CANCER
     Dosage: 7.5 mg/kg, on day one every three weeks
     Route: 042
     Dates: start: 20100514, end: 20100514
  4. DURAGESIC [Concomitant]
     Dosage: UNK UNK, 1 every 3 days
     Route: 062
  5. MCP [Concomitant]
     Dosage: UNK
  6. VIANI [Concomitant]
     Dosage: 300 mg, UNK
  7. NOVALGIN [Concomitant]
     Dosage: 40 UNK, UNK
  8. PANTOPRAZOLE [Concomitant]
     Dosage: 40 mg, qd
  9. METOPROLOL [Concomitant]
     Dosage: 47.5 mg, bid
  10. LORAZEPAM [Concomitant]
     Dosage: 0.5 mg, bid
  11. FORTECORTIN [Concomitant]
     Dosage: 4 mg, tid
  12. AMLODIN [Concomitant]
     Dosage: 5 mg, UNK
  13. LAXOBERAL [Concomitant]
     Dosage: UNK
  14. HYDROCHLOROTHIAZIDE [Concomitant]
     Dosage: 25 mg, qd
  15. MAGNESIUM [Concomitant]
     Dosage: 2 DF, bid
  16. ONDANSETRON [Concomitant]
     Dosage: 4 mg, prn

REACTIONS (1)
  - General physical health deterioration [Recovered/Resolved]
